FAERS Safety Report 7392733-2 (Version None)
Quarter: 2011Q1

REPORT INFORMATION
  Report Type: 
  Country: None (occurrence: None)
  Receive Date: 20110330
  Receipt Date: 20110330
  Transmission Date: 20110831
  Serious: Yes (Other)
  Sender: FDA-Public Use
  Company Number: None

PATIENT
  Age: 24 Year
  Sex: Female
  Weight: 68.0396 kg

DRUGS (1)
  1. YAZ [Suspect]
     Indication: CONTRACEPTION
     Dosage: 1 PILL DAILY PO
     Route: 048
     Dates: start: 20080301, end: 20100918

REACTIONS (7)
  - ANXIETY [None]
  - DEPRESSION [None]
  - DIZZINESS [None]
  - HYPERHIDROSIS [None]
  - DYSPHAGIA [None]
  - PALPITATIONS [None]
  - PANIC ATTACK [None]
